FAERS Safety Report 20013574 (Version 1)
Quarter: 2021Q4

REPORT INFORMATION
  Report Type: Spontaneous
  Country: US (occurrence: US)
  Receive Date: 20211029
  Receipt Date: 20211029
  Transmission Date: 20220303
  Serious: Yes (Other)
  Sender: FDA-Public Use
  Company Number: US-LUNDBECK-DKLU3039750

PATIENT
  Sex: Female

DRUGS (4)
  1. ESCITALOPRAM OXALATE [Suspect]
     Active Substance: ESCITALOPRAM OXALATE
     Indication: Product used for unknown indication
     Route: 065
  2. RISPERIDONE [Suspect]
     Active Substance: RISPERIDONE
     Indication: Product used for unknown indication
     Dosage: 4 MG NIGHTLY
     Route: 065
  3. QUETIAPINE [Suspect]
     Active Substance: QUETIAPINE
     Indication: Product used for unknown indication
     Dosage: 100 MG NIGHTLY
     Route: 065
  4. TRAZODONE [Suspect]
     Active Substance: TRAZODONE HYDROCHLORIDE
     Indication: Product use in unapproved indication
     Dosage: 200 MG NIGHTLY
     Route: 065

REACTIONS (8)
  - Hallucination, auditory [Unknown]
  - Weight increased [Unknown]
  - Delusion [Unknown]
  - Dermatitis contact [Unknown]
  - Urinary tract infection [Unknown]
  - Mood altered [Unknown]
  - Self-injurious ideation [Unknown]
  - Intentional self-injury [Unknown]
